FAERS Safety Report 9759544 (Version 2)
Quarter: 2015Q3

REPORT INFORMATION
  Report Type: Spontaneous
  Country: US (occurrence: US)
  Receive Date: 20131216
  Receipt Date: 20150805
  Transmission Date: 20151125
  Serious: No
  Sender: FDA-Public Use
  Company Number: US-GILEAD-2010-0028030

PATIENT
  Age: 75 Year
  Sex: Female
  Weight: 65.77 kg

DRUGS (23)
  1. PROTONIX [Concomitant]
     Active Substance: PANTOPRAZOLE SODIUM
  2. CLOTRIMAZOLE/NETAMETHASONE CREAM [Concomitant]
  3. LETAIRIS [Suspect]
     Active Substance: AMBRISENTAN
     Indication: PULMONARY ARTERIAL HYPERTENSION
     Route: 048
     Dates: start: 20100129
  4. LYRICA [Concomitant]
     Active Substance: PREGABALIN
  5. COUMADIN [Concomitant]
     Active Substance: WARFARIN SODIUM
  6. NITROGLYCERINE [Concomitant]
     Active Substance: NITROGLYCERIN
  7. PLAVIX [Concomitant]
     Active Substance: CLOPIDOGREL BISULFATE
  8. DIAMOX SEQUELS [Concomitant]
     Active Substance: ACETAZOLAMIDE
  9. TYLENOL WITH CODEINE [Concomitant]
     Active Substance: ACETAMINOPHEN\CODEINE PHOSPHATE
  10. HUMULIN R [Concomitant]
     Active Substance: INSULIN HUMAN
  11. NORVASC [Concomitant]
     Active Substance: AMLODIPINE BESYLATE
  12. GLIPIZIDE. [Concomitant]
     Active Substance: GLIPIZIDE
  13. NEXIUM [Concomitant]
     Active Substance: ESOMEPRAZOLE MAGNESIUM
  14. TEKTURNA [Concomitant]
     Active Substance: ALISKIREN HEMIFUMARATE
  15. SOTALOL. [Concomitant]
     Active Substance: SOTALOL
  16. ZOCOR [Concomitant]
     Active Substance: SIMVASTATIN
  17. ADVAIR HFA [Concomitant]
     Active Substance: FLUTICASONE PROPIONATE\SALMETEROL XINAFOATE
  18. NEVANAC [Concomitant]
     Active Substance: NEPAFENAC
  19. CLONIDINE. [Concomitant]
     Active Substance: CLONIDINE
  20. AVAPRO [Concomitant]
     Active Substance: IRBESARTAN
  21. LEVAQUIN [Concomitant]
     Active Substance: LEVOFLOXACIN
  22. NEURONTIN [Concomitant]
     Active Substance: GABAPENTIN
  23. PARACETAMOL/HYDROCODONE BITARTRATE [Concomitant]

REACTIONS (1)
  - Dyspnoea [Unknown]
